FAERS Safety Report 21493384 (Version 1)
Quarter: 2022Q4

REPORT INFORMATION
  Report Type: Spontaneous
  Country: US (occurrence: US)
  Receive Date: 20221021
  Receipt Date: 20221021
  Transmission Date: 20230113
  Serious: No
  Sender: FDA-Public Use
  Company Number: US-INCYTE CORPORATION-2022IN009879

PATIENT

DRUGS (1)
  1. JAKAFI [Suspect]
     Active Substance: RUXOLITINIB
     Indication: Myelofibrosis
     Dosage: 5 MILLIGRAM, BID ON MONDAY, TUESDAY, WEDNESDAY AND THURSDAY
     Route: 048
     Dates: start: 20210309

REACTIONS (9)
  - Bone marrow disorder [Unknown]
  - Myalgia [Unknown]
  - Arthralgia [Unknown]
  - Fatigue [Unknown]
  - Platelet count abnormal [Unknown]
  - Red blood cell count abnormal [Unknown]
  - Diarrhoea [Unknown]
  - Constipation [Unknown]
  - Dyspnoea [Unknown]
